FAERS Safety Report 10753698 (Version 2)
Quarter: 2015Q1

REPORT INFORMATION
  Report Type: Report from Study
  Country: DK (occurrence: None)
  Receive Date: 20150129
  Receipt Date: 20150325
  Transmission Date: 20150721
  Serious: Yes (Death, Life-Threatening, Hospitalization)
  Sender: FDA-Public Use
  Company Number: 2719289

PATIENT
  Age: 56 Year
  Sex: Male
  Weight: 80 kg

DRUGS (4)
  1. BIBF 1120 [Suspect]
     Active Substance: NINTEDANIB
     Indication: NON-SMALL CELL LUNG CANCER
     Dosage: 200 MG MILLIGRAM(S), 2 DAY
     Route: 048
     Dates: start: 20141206, end: 20141228
  2. PREDNISOLONE. [Concomitant]
     Active Substance: PREDNISOLONE
  3. DOCETAXEL. [Suspect]
     Active Substance: DOCETAXEL
     Indication: NON-SMALL CELL LUNG CANCER
     Dosage: 140 MG MILLIGRAM(S), 1 DAY
     Route: 042
     Dates: start: 20141205, end: 20141205
  4. PANTOPRAZOLE [Concomitant]
     Active Substance: PANTOPRAZOLE SODIUM

REACTIONS (6)
  - Sepsis [None]
  - Respiratory failure [None]
  - Supraventricular tachycardia [None]
  - Hypotension [None]
  - Pneumonia [None]
  - No therapeutic response [None]

NARRATIVE: CASE EVENT DATE: 20150101
